FAERS Safety Report 11993754 (Version 3)
Quarter: 2016Q4

REPORT INFORMATION
  Report Type: Spontaneous
  Country: US (occurrence: US)
  Receive Date: 20160203
  Receipt Date: 20161027
  Transmission Date: 20170206
  Serious: Yes (Death, Life-Threatening, Hospitalization, Other)
  Sender: FDA-Public Use
  Company Number: US-009507513-1602USA001369

PATIENT
  Sex: Female

DRUGS (1)
  1. JANUVIA [Suspect]
     Active Substance: SITAGLIPTIN PHOSPHATE
     Indication: TYPE 2 DIABETES MELLITUS
     Dosage: 100 MG, DAILY
     Route: 048
     Dates: start: 20120227, end: 20131216

REACTIONS (23)
  - Portosplenomesenteric venous thrombosis [Unknown]
  - Abdominal hernia [Unknown]
  - Splenic vein occlusion [Unknown]
  - Metastases to liver [Unknown]
  - Pulmonary fibrosis [Unknown]
  - Cystopexy [Unknown]
  - Atelectasis [Unknown]
  - Aortic arteriosclerosis [Unknown]
  - Anaemia of malignant disease [Unknown]
  - Diverticulum intestinal [Unknown]
  - Hypothyroidism [Unknown]
  - Iron deficiency anaemia [Unknown]
  - Pancreatic carcinoma metastatic [Fatal]
  - Spinal osteoarthritis [Unknown]
  - Coronary arterial stent insertion [Unknown]
  - Hysterectomy [Unknown]
  - Blood cholesterol increased [Unknown]
  - Coronary artery disease [Unknown]
  - Cardiac pacemaker insertion [Unknown]
  - Inguinal hernia [Unknown]
  - Cardiomegaly [Unknown]
  - Hypertension [Unknown]
  - Microcytic anaemia [Unknown]

NARRATIVE: CASE EVENT DATE: 201310
